FAERS Safety Report 13095061 (Version 1)
Quarter: 2017Q1

REPORT INFORMATION
  Report Type: Spontaneous
  Country: FR (occurrence: FR)
  Receive Date: 20170106
  Receipt Date: 20170106
  Transmission Date: 20170428
  Serious: Yes (Hospitalization, Other)
  Sender: FDA-Public Use
  Company Number: FR-GILEAD-2017-0251742

PATIENT
  Age: 40 Year
  Sex: Male

DRUGS (10)
  1. TRUVADA [Suspect]
     Active Substance: EMTRICITABINE\TENOFOVIR DISOPROXIL FUMARATE
     Indication: HIV INFECTION
     Dosage: 1 DF, QD
     Route: 048
     Dates: start: 20161028, end: 20161111
  2. CLAFORAN [Concomitant]
     Active Substance: CEFOTAXIME SODIUM
  3. LASILIX                            /00032601/ [Suspect]
     Active Substance: FUROSEMIDE
     Indication: DIURETIC THERAPY
     Dosage: 40 MG, BID
     Route: 048
     Dates: start: 20161028, end: 20161111
  4. OFLOXACINE [Suspect]
     Active Substance: OFLOXACIN
     Indication: PROSTATITIS ESCHERICHIA COLI
     Dosage: UNK
     Route: 048
     Dates: start: 20161101, end: 20161114
  5. ALDACTONE [Suspect]
     Active Substance: SPIRONOLACTONE
     Indication: DIURETIC THERAPY
     Dosage: 25 MG, QD
     Route: 048
     Dates: start: 20161028, end: 20161111
  6. PREZISTA [Suspect]
     Active Substance: DARUNAVIR ETHANOLATE
     Indication: HIV INFECTION
     Dosage: 800 MG, QD
     Route: 048
     Dates: start: 20161028, end: 20161111
  7. NORVIR [Suspect]
     Active Substance: RITONAVIR
     Indication: HIV INFECTION
     Dosage: 100 MG, QD
     Route: 048
     Dates: start: 20161028, end: 20161111
  8. OFLOXACINE [Suspect]
     Active Substance: OFLOXACIN
     Indication: BACTERIAL PROSTATITIS
  9. FLAGYL [Concomitant]
     Active Substance: METRONIDAZOLE\METRONIDAZOLE HYDROCHLORIDE
  10. BACTRIM [Suspect]
     Active Substance: SULFAMETHOXAZOLE\TRIMETHOPRIM
     Indication: ANTIFUNGAL PROPHYLAXIS
     Dosage: 480 MG, QD
     Route: 048
     Dates: start: 20161028, end: 20161111

REACTIONS (4)
  - Prerenal failure [Recovered/Resolved]
  - Acute kidney injury [Recovered/Resolved]
  - Renal tubular acidosis [Recovered/Resolved]
  - Renal failure [Recovered/Resolved]

NARRATIVE: CASE EVENT DATE: 20161111
